FAERS Safety Report 23219027 (Version 1)
Quarter: 2023Q4

REPORT INFORMATION
  Report Type: Spontaneous
  Country: US (occurrence: US)
  Receive Date: 20231122
  Receipt Date: 20231122
  Transmission Date: 20240110
  Serious: Yes (Disabling, Other)
  Sender: FDA-Public Use
  Company Number: US-NOVOPROD-1142463

PATIENT
  Sex: Female

DRUGS (1)
  1. NOVOLOG [Suspect]
     Active Substance: INSULIN ASPART
     Indication: Product used for unknown indication
     Dosage: UNK
     Route: 058
     Dates: start: 1998

REACTIONS (4)
  - Balance disorder [Not Recovered/Not Resolved]
  - Fall [Unknown]
  - Neuropathy peripheral [Not Recovered/Not Resolved]
  - Hypoglycaemia [Unknown]
